FAERS Safety Report 24712000 (Version 2)
Quarter: 2024Q4

REPORT INFORMATION
  Report Type: Report from Study
  Country: BE (occurrence: BE)
  Receive Date: 20241209
  Receipt Date: 20241226
  Transmission Date: 20250115
  Serious: Yes (Other)
  Sender: ABBVIE
  Company Number: BE-ABBVIE-6034334

PATIENT
  Age: 68 Year
  Sex: Male

DRUGS (10)
  1. CARBIDOPA\LEVODOPA [Suspect]
     Active Substance: CARBIDOPA\LEVODOPA
     Indication: Parkinson^s disease
     Dosage: LAST ADMIN DATE: NOV 2024
     Route: 050
     Dates: start: 20241111
  2. CARBIDOPA\LEVODOPA [Suspect]
     Active Substance: CARBIDOPA\LEVODOPA
     Dosage: MORNING DOSAGE (ML):- 4.0 ADD TUBE FILING(ML):- 3.0(ML), CONTINUOUS DOSAGE(ML/H):- 2.2(ML/H), EXT...
     Route: 050
     Dates: start: 20241126, end: 20241126
  3. CARBIDOPA\LEVODOPA [Suspect]
     Active Substance: CARBIDOPA\LEVODOPA
     Dosage: MORNING DOSAGE (ML):- 6.9(ML), CONTINUOUS DOSAGE(ML/H):- 2.2(ML/H),  NIGHT CONTINUOUS DOSAGE (ML/...
     Route: 050
     Dates: start: 20241112, end: 20241112
  4. CARBIDOPA\LEVODOPA [Suspect]
     Active Substance: CARBIDOPA\LEVODOPA
     Dosage: MORNING DOSAGE (ML):- 0.0(ML), CONTINUOUS DOSAGE(ML/H):- 1.8(ML/H), EXTRA DOSE(ML):- 2.00(ML), NI...
     Route: 050
     Dates: start: 20241108, end: 20241108
  5. RIVOTRIL [Concomitant]
     Active Substance: CLONAZEPAM
     Indication: Product used for unknown indication
     Dosage: DOSE/FREQUENCY : 1/DAY 10 PM
  6. TAMSULOSIN [Concomitant]
     Active Substance: TAMSULOSIN
     Indication: Muscle relaxant therapy
     Dosage: DOSE/FREQUENC:-Y1/DAY 7 H
     Route: 048
  7. XADAGO [Concomitant]
     Active Substance: SAFINAMIDE MESYLATE
     Indication: Parkinson^s disease
     Dosage: DOSE/FREQUENCY:-  7 H, 7 AM
  8. BENSERAZIDE\LEVODOPA [Concomitant]
     Active Substance: BENSERAZIDE\LEVODOPA
     Indication: Parkinson^s disease
     Dosage: DOSE/FREQUENCY :-0.75 TABLET 5 X PER DAY (7AM-10AM-1PM4PM-7PM)
  9. MIRABEGRON [Concomitant]
     Active Substance: MIRABEGRON
     Indication: Hypertonic bladder
     Dosage: DOSE/FREQUENCY :- 1/DAY 7 AM
  10. GABAPENTIN [Concomitant]
     Active Substance: GABAPENTIN
     Indication: Neuropathy peripheral
     Dosage: DOSE/FREQUENCY:-2X/DAY 7 AM + 7 PM

REACTIONS (3)
  - Embedded device [Unknown]
  - Abdominal pain [Unknown]
  - Patient dissatisfaction with treatment [Unknown]

NARRATIVE: CASE EVENT DATE: 20241201
